FAERS Safety Report 7995395 (Version 5)
Quarter: 2012Q4

REPORT INFORMATION
  Report Type: 
  Country: US (occurrence: US)
  Receive Date: 20110617
  Receipt Date: 20121008
  Transmission Date: 20130627
  Serious: Yes (Other)
  Sender: FDA-Public Use
  Company Number: US-JNJFOC-20110604966

PATIENT
  Age: 77 None
  Sex: Female
  Weight: 58.51 kg

DRUGS (23)
  1. DURAGESIC [Suspect]
     Indication: EPSTEIN-BARR VIRUS INFECTION
     Route: 062
     Dates: start: 2003
  2. DURAGESIC [Suspect]
     Indication: EPSTEIN-BARR VIRUS INFECTION
     Route: 062
     Dates: start: 2003
  3. DURAGESIC [Suspect]
     Indication: LYME DISEASE
     Route: 062
     Dates: start: 2003
  4. DURAGESIC [Suspect]
     Indication: LYME DISEASE
     Route: 062
     Dates: start: 2003
  5. DURAGESIC [Suspect]
     Indication: FIBROMYALGIA
     Route: 062
     Dates: start: 2003
  6. DURAGESIC [Suspect]
     Indication: FIBROMYALGIA
     Route: 062
     Dates: start: 2003
  7. DURAGESIC [Suspect]
     Indication: PAIN
     Route: 062
     Dates: start: 2003
  8. DURAGESIC [Suspect]
     Indication: PAIN
     Route: 062
     Dates: start: 2003
  9. DURAGESIC [Suspect]
     Indication: EPSTEIN-BARR VIRUS INFECTION
     Route: 062
     Dates: start: 2011
  10. DURAGESIC [Suspect]
     Indication: EPSTEIN-BARR VIRUS INFECTION
     Route: 062
     Dates: end: 2011
  11. DURAGESIC [Suspect]
     Indication: LYME DISEASE
     Route: 062
     Dates: end: 2011
  12. DURAGESIC [Suspect]
     Indication: LYME DISEASE
     Route: 062
     Dates: start: 2011
  13. DURAGESIC [Suspect]
     Indication: FIBROMYALGIA
     Route: 062
     Dates: end: 2011
  14. DURAGESIC [Suspect]
     Indication: FIBROMYALGIA
     Route: 062
     Dates: start: 2011
  15. DURAGESIC [Suspect]
     Indication: PAIN
     Route: 062
     Dates: start: 2011
  16. DURAGESIC [Suspect]
     Indication: PAIN
     Route: 062
     Dates: end: 2011
  17. DURAGESIC [Suspect]
     Indication: PRODUCT USED FOR UNKNOWN INDICATION
     Route: 062
  18. NORVASC [Concomitant]
     Indication: BLOOD PRESSURE
     Dosage: 2.5
     Route: 048
     Dates: start: 2003
  19. SYNTHROID [Concomitant]
     Indication: THYROID DISORDER
     Route: 048
  20. KLONOPIN [Concomitant]
     Indication: NEUROPATHY PERIPHERAL
     Route: 048
     Dates: start: 2003
  21. AMBIEN [Concomitant]
     Indication: SLEEP DISORDER
     Route: 048
     Dates: start: 2003
  22. DILAUDID [Concomitant]
     Indication: PAIN
     Route: 065
  23. DARVOCET [Concomitant]
     Route: 065

REACTIONS (10)
  - Intervertebral disc degeneration [Recovered/Resolved]
  - Fall [Recovered/Resolved]
  - Head injury [Recovered/Resolved]
  - Cervical vertebral fracture [Recovered/Resolved]
  - Concussion [Unknown]
  - Wrong technique in drug usage process [Recovered/Resolved]
  - Product adhesion issue [Unknown]
  - Breakthrough pain [Not Recovered/Not Resolved]
  - Incorrect drug administration duration [Recovered/Resolved]
  - Adverse event [Unknown]
